FAERS Safety Report 5547883-X (Version None)
Quarter: 2007Q4

REPORT INFORMATION
  Report Type: 
  Country: None (occurrence: None)
  Receive Date: 20071211
  Receipt Date: 20070327
  Transmission Date: 20080405
  Serious: No
  Sender: FDA-Public Use
  Company Number: US-AMGEN-KDL217053

PATIENT
  Sex: Female

DRUGS (2)
  1. ENBREL [Suspect]
     Indication: PSORIASIS
     Route: 058
     Dates: start: 20061212
  2. SORIATANE [Concomitant]
     Dates: start: 20040101

REACTIONS (4)
  - FATIGUE [None]
  - HOT FLUSH [None]
  - JOINT STIFFNESS [None]
  - WEIGHT INCREASED [None]
